FAERS Safety Report 22207484 (Version 1)
Quarter: 2023Q2

REPORT INFORMATION
  Report Type: Spontaneous
  Country: CN (occurrence: CN)
  Receive Date: 20230413
  Receipt Date: 20230413
  Transmission Date: 20230722
  Serious: Yes (Hospitalization)
  Sender: FDA-Public Use
  Company Number: CN-PFIZER INC-PV202300066750

PATIENT
  Age: 11 Year
  Sex: Male
  Weight: 34 kg

DRUGS (6)
  1. EPIRUBICIN [Suspect]
     Active Substance: EPIRUBICIN
     Indication: Rhabdomyosarcoma
     Dosage: 30 MG (+0.9% NS 250 ML), 1X/DAY
     Route: 041
     Dates: start: 20230318, end: 20230320
  2. CYCLOPHOSPHAMIDE [Suspect]
     Active Substance: CYCLOPHOSPHAMIDE
     Indication: Rhabdomyosarcoma
     Dosage: 1.4 G, ((4:1) GLUCOSE/SODIUM CHLORIDE INJECTION 500ML), 1X/DAY
     Route: 041
     Dates: start: 20230318, end: 20230319
  3. VINDESINE SULFATE [Suspect]
     Active Substance: VINDESINE SULFATE
     Indication: Rhabdomyosarcoma
     Dosage: 3.6 MG (+ 0.9% NS 50 ML), 1X/DAY
     Route: 041
     Dates: start: 20230318, end: 20230318
  4. SODIUM CHLORIDE [Concomitant]
     Active Substance: SODIUM CHLORIDE
     Indication: Vehicle solution use
     Dosage: 50 ML, 1X/DAY (FOR VINDESINE SULFATE)
     Route: 041
     Dates: start: 20230318, end: 20230318
  5. SODIUM CHLORIDE [Concomitant]
     Active Substance: SODIUM CHLORIDE
     Dosage: 250 ML, 1X/DAY (FOR EPIRUBICIN HCL)
     Route: 041
     Dates: start: 20230318, end: 20230320
  6. DEXTROSE\SODIUM CHLORIDE [Concomitant]
     Active Substance: DEXTROSE\SODIUM CHLORIDE
     Indication: Vehicle solution use
     Dosage: 500 ML (4:1 GLUCOSE/SODIUM CHLORIDE) , 1X/DAY (FOR CYCLOPHOSPHAMIDE)
     Route: 041
     Dates: start: 20230318, end: 20230319

REACTIONS (1)
  - Myelosuppression [Recovering/Resolving]

NARRATIVE: CASE EVENT DATE: 20230325
